FAERS Safety Report 7323990-6 (Version None)
Quarter: 2011Q1

REPORT INFORMATION
  Report Type: 
  Country: None (occurrence: None)
  Receive Date: 20110301
  Receipt Date: 20110221
  Transmission Date: 20110831
  Serious: Yes (Life-Threatening, Hospitalization, Other)
  Sender: FDA-Public Use
  Company Number: IT-PFIZER INC-2011038624

PATIENT
  Age: 72 Year
  Sex: Male

DRUGS (1)
  1. SUNITINIB MALATE [Suspect]
     Indication: HEPATIC NEOPLASM MALIGNANT
     Dosage: 50 MG, 1X/DAY, 4 WEEKS ON/2 WEEKS OFF
     Route: 048

REACTIONS (4)
  - HAEMATEMESIS [None]
  - SHOCK HAEMORRHAGIC [None]
  - THROMBOCYTOPENIA [None]
  - GASTROINTESTINAL HAEMORRHAGE [None]
